FAERS Safety Report 9244381 (Version 1)
Quarter: 2013Q1

REPORT INFORMATION
  Report Type: Spontaneous
  Country: US (occurrence: None)
  Receive Date: 20121123
  Receipt Date: 20121123
  Transmission Date: 20140127
  Serious: No
  Sender: FDA-Public Use
  Company Number: 359082

PATIENT
  Age: 78 Year
  Sex: Female

DRUGS (1)
  1. VICTOZA [Suspect]
     Indication: TYPE 2 DIABETES MELLITUS
     Route: 058
     Dates: start: 2012, end: 2012

REACTIONS (11)
  - Back pain [None]
  - Flank pain [None]
  - Anxiety [None]
  - Hyperhidrosis [None]
  - Weight decreased [None]
  - Decreased appetite [None]
  - Malaise [None]
  - Vomiting [None]
  - Diarrhoea [None]
  - Nausea [None]
  - Eructation [None]
